FAERS Safety Report 4625779-5 (Version None)
Quarter: 2005Q1

REPORT INFORMATION
  Report Type: 
  Country: None (occurrence: None)
  Receive Date: 20050330
  Receipt Date: 20050314
  Transmission Date: 20050727
  Serious: Yes (Hospitalization)
  Sender: FDA-Public Use
  Company Number: 2004IM000925

PATIENT
  Age: 57 Year
  Sex: Male

DRUGS (5)
  1. ADVAFERON (A643_INTERFERON ALFACON-1) [Suspect]
     Indication: HEPATITIS C
     Dosage: 18 MU, QD, INTRAMUSCULAR; 18 MU, TIW, INTRAMUSCULAR
     Route: 030
     Dates: start: 20041012, end: 20041027
  2. ADVAFERON (A643_INTERFERON ALFACON-1) [Suspect]
     Indication: HEPATITIS C
     Dosage: 18 MU, QD, INTRAMUSCULAR; 18 MU, TIW, INTRAMUSCULAR
     Route: 030
     Dates: start: 20001028, end: 20041030
  3. LOXOPROFEN SODIUM [Concomitant]
  4. TEPRENONE [Concomitant]
  5. ZOLPIDEM TARTRATE [Concomitant]

REACTIONS (8)
  - ALANINE AMINOTRANSFERASE INCREASED [None]
  - ASPARTATE AMINOTRANSFERASE INCREASED [None]
  - HYPERAMYLASAEMIA [None]
  - MALAISE [None]
  - PLATELET COUNT DECREASED [None]
  - PYREXIA [None]
  - URINE AMYLASE INCREASED [None]
  - WHITE BLOOD CELL COUNT INCREASED [None]
